FAERS Safety Report 14770344 (Version 2)
Quarter: 2022Q2

REPORT INFORMATION
  Report Type: Spontaneous
  Country: NL (occurrence: NL)
  Receive Date: 20180417
  Receipt Date: 20220603
  Transmission Date: 20220721
  Serious: Yes (Death, Other)
  Sender: FDA-Public Use
  Company Number: NL-TAKEDA-2005-02627

PATIENT
  Age: 76 Year
  Sex: Female
  Weight: 50 kg

DRUGS (12)
  1. VELCADE [Suspect]
     Active Substance: BORTEZOMIB
     Indication: Plasma cell myeloma
     Dosage: 2 MILLIGRAM/SQ. METER
     Route: 042
     Dates: start: 20051215
  2. VELCADE [Suspect]
     Active Substance: BORTEZOMIB
     Dosage: 1.3 MILLIGRAM/SQ. METER
     Route: 065
     Dates: start: 20051215
  3. DEXAMETHASONE SODIUM PHOSPHATE [Concomitant]
     Active Substance: DEXAMETHASONE SODIUM PHOSPHATE
     Indication: Plasma cell myeloma
     Dosage: 40 MILLIGRAM, QD
     Route: 065
     Dates: start: 20051215, end: 20051216
  4. TRAMADOL HYDROCHLORIDE [Concomitant]
     Active Substance: TRAMADOL HYDROCHLORIDE
     Indication: Pain
     Dosage: 50 MILLIGRAM, QD
     Route: 048
  5. TRAMADOL HYDROCHLORIDE [Concomitant]
     Active Substance: TRAMADOL HYDROCHLORIDE
     Dosage: 30 MILLIGRAM, QD
     Route: 048
     Dates: start: 20051214, end: 20051216
  6. FLUIMUCIL [Concomitant]
     Active Substance: ACETYLCYSTEINE
     Dosage: UNK
     Route: 065
  7. AUGMENTIN [Concomitant]
     Active Substance: AMOXICILLIN\CLAVULANATE POTASSIUM
     Dosage: 1200 MG, BID
     Route: 042
     Dates: start: 20051214, end: 20051219
  8. MORPHINE HYDROCHLORIDE [Concomitant]
     Active Substance: MORPHINE HYDROCHLORIDE
     Dosage: 1 MILLIGRAM, Q1HR
     Route: 065
     Dates: start: 20051217
  9. METOCLOPRAMIDE HYDROCHLORIDE [Concomitant]
     Active Substance: METOCLOPRAMIDE HYDROCHLORIDE
     Dosage: 10 MILLIGRAM, TID
     Route: 065
     Dates: start: 20051215, end: 20051219
  10. AMOXICILLIN\CLAVULANIC ACID [Concomitant]
     Active Substance: AMOXICILLIN\CLAVULANIC ACID
     Dosage: UNK
     Route: 065
  11. NADROPARIN CALCIUM [Concomitant]
     Active Substance: NADROPARIN CALCIUM
     Dosage: 0.3 MILLILITER, QD
     Route: 065
     Dates: start: 20051214, end: 20051219
  12. DEXAMETHASONE CIPECILATE [Concomitant]
     Dosage: 40 MILLIGRAM, QD
     Route: 065
     Dates: start: 20051215, end: 20051216

REACTIONS (13)
  - Death [Fatal]
  - Seizure [Fatal]
  - Hypocalcaemia [Fatal]
  - Urea urine increased [Unknown]
  - General physical condition abnormal [Unknown]
  - C-reactive protein increased [Unknown]
  - Creatinine urine decreased [Unknown]
  - Albumin urine present [Unknown]
  - Epilepsy [Unknown]
  - Haemoglobin decreased [Unknown]
  - Cardiac failure [Unknown]
  - Pneumonia [Unknown]
  - Sepsis [Unknown]

NARRATIVE: CASE EVENT DATE: 20051217
